FAERS Safety Report 9543555 (Version 2)
Quarter: 2013Q4

REPORT INFORMATION
  Report Type: Spontaneous
  Country: US (occurrence: US)
  Receive Date: 20130923
  Receipt Date: 20131014
  Transmission Date: 20140711
  Serious: Yes (Hospitalization)
  Sender: FDA-Public Use
  Company Number: US-JNJFOC-20130909373

PATIENT
  Age: 63 Year
  Sex: Male
  Weight: 79.47 kg

DRUGS (9)
  1. INVOKANA [Suspect]
     Indication: TYPE 2 DIABETES MELLITUS
     Route: 048
     Dates: start: 20130904, end: 20130913
  2. TESTOSTERONE [Concomitant]
     Indication: HYPOGONADISM
     Route: 030
     Dates: start: 20130904
  3. CELL CEPT [Concomitant]
  4. LANTUS [Concomitant]
  5. NOVOLOG [Concomitant]
  6. SYNTHROID [Concomitant]
  7. CALCIUM [Concomitant]
  8. VITAMIN D3 [Concomitant]
  9. CALCIUM WITH VITAMIN D [Concomitant]

REACTIONS (5)
  - Dyspnoea [Recovering/Resolving]
  - Diabetic ketoacidosis [Recovering/Resolving]
  - Dehydration [Recovering/Resolving]
  - Cyanosis [Recovering/Resolving]
  - Weight decreased [Unknown]
